FAERS Safety Report 12631384 (Version 2)
Quarter: 2016Q3

REPORT INFORMATION
  Report Type: Spontaneous
  Country: US (occurrence: US)
  Receive Date: 20160808
  Receipt Date: 20160808
  Transmission Date: 20161109
  Serious: No
  Sender: FDA-Public Use
  Company Number: US-BEH-2015053636

PATIENT
  Sex: Female

DRUGS (2)
  1. HIZENTRA [Suspect]
     Active Substance: HUMAN IMMUNOGLOBULIN G
     Indication: PRODUCT USED FOR UNKNOWN INDICATION
     Route: 058
     Dates: start: 20150802, end: 20150824
  2. HIZENTRA [Suspect]
     Active Substance: HUMAN IMMUNOGLOBULIN G
     Route: 058
     Dates: start: 20150802, end: 20150824

REACTIONS (4)
  - Injection site erythema [Recovered/Resolved]
  - Headache [Unknown]
  - Injection site extravasation [Recovered/Resolved]
  - Skin irritation [Unknown]

NARRATIVE: CASE EVENT DATE: 20150824
